FAERS Safety Report 15927560 (Version 3)
Quarter: 2020Q1

REPORT INFORMATION
  Report Type: Spontaneous
  Country: US (occurrence: US)
  Receive Date: 20190205
  Receipt Date: 20200129
  Transmission Date: 20200409
  Serious: No
  Sender: FDA-Public Use
  Company Number: US-ALLERGAN-1859483US

PATIENT
  Sex: Female

DRUGS (2)
  1. LIPITOR [Concomitant]
     Active Substance: ATORVASTATIN CALCIUM
     Indication: BLOOD CHOLESTEROL INCREASED
     Dosage: 20 MG, QD
     Route: 048
     Dates: start: 2014
  2. BOTOX [Suspect]
     Active Substance: ONABOTULINUMTOXINA
     Indication: MIGRAINE
     Dosage: ACTUAL: 30 INJECTION, SOME IN FOREHEAD
     Route: 030
     Dates: start: 2015, end: 2015

REACTIONS (3)
  - Drug ineffective [Unknown]
  - Chest pain [Recovered/Resolved]
  - Drug hypersensitivity [Unknown]
